FAERS Safety Report 7039080-6 (Version None)
Quarter: 2010Q4

REPORT INFORMATION
  Report Type: 
  Country: None (occurrence: None)
  Receive Date: 20101012
  Receipt Date: 20101001
  Transmission Date: 20110411
  Serious: Yes (Hospitalization)
  Sender: FDA-Public Use
  Company Number: US-US-EMD SERONO, INC.-7019937

PATIENT
  Sex: Female
  Weight: 101 kg

DRUGS (12)
  1. REBIF [Suspect]
     Indication: MULTIPLE SCLEROSIS
     Route: 058
     Dates: start: 20080926
  2. FUROSEMIDE [Concomitant]
     Indication: HYPERTENSION
  3. HUMALOG [Concomitant]
     Indication: DIABETES MELLITUS
     Dates: start: 20080901
  4. HUMALOG [Concomitant]
     Dates: start: 20100101
  5. MORPHINE [Concomitant]
     Indication: OSTEOARTHRITIS
     Route: 048
     Dates: end: 20100101
  6. BENAZEPRIL HYDROCHLORIDE [Concomitant]
     Indication: HYPERTENSION
  7. AMLODIPINE [Concomitant]
     Indication: HYPERTENSION
  8. LEVOTHYROXINE [Concomitant]
     Indication: HYPOTHYROIDISM
  9. CELEXA [Concomitant]
     Indication: BIPOLAR DISORDER
     Dates: end: 20090101
  10. CELEXA [Concomitant]
     Dates: start: 20090101
  11. SIMVASTATIN [Concomitant]
     Indication: BLOOD CHOLESTEROL INCREASED
  12. KLONOPIN [Concomitant]

REACTIONS (5)
  - ACCIDENTAL OVERDOSE [None]
  - BLOOD GLUCOSE INCREASED [None]
  - CARDIAC FAILURE CONGESTIVE [None]
  - DEPRESSION [None]
  - RENAL FAILURE [None]
